FAERS Safety Report 5929777-0 (Version None)
Quarter: 2008Q4

REPORT INFORMATION
  Report Type: 
  Country: None (occurrence: None)
  Receive Date: 20081021
  Receipt Date: 20081007
  Transmission Date: 20090506
  Serious: Yes (Death, Hospitalization)
  Sender: FDA-Public Use
  Company Number: 2008BI001762

PATIENT
  Age: 47 Year
  Sex: Female

DRUGS (2)
  1. TYSABRI [Suspect]
     Indication: MULTIPLE SCLEROSIS
     Dosage: 300 MG; QM; IV, 300 MG; QM; IV
     Route: 042
     Dates: start: 20050105, end: 20050105
  2. TYSABRI [Suspect]
     Indication: MULTIPLE SCLEROSIS
     Dosage: 300 MG; QM; IV, 300 MG; QM; IV
     Route: 042
     Dates: start: 20060825, end: 20071219

REACTIONS (6)
  - ADENOCARCINOMA PANCREAS [None]
  - GALLBLADDER OBSTRUCTION [None]
  - METASTASES TO GASTROINTESTINAL TRACT [None]
  - METASTASES TO LYMPH NODES [None]
  - POST PROCEDURAL COMPLICATION [None]
  - POST PROCEDURAL HAEMORRHAGE [None]
